FAERS Safety Report 13382272 (Version 1)
Quarter: 2017Q1

REPORT INFORMATION
  Report Type: Report from Study
  Country: JP (occurrence: JP)
  Receive Date: 20170329
  Receipt Date: 20170329
  Transmission Date: 20170429
  Serious: Yes (Hospitalization, Other)
  Sender: FDA-Public Use
  Company Number: PHHY2013JP171580

PATIENT
  Age: 50 Year
  Sex: Female
  Weight: 49 kg

DRUGS (13)
  1. TYKERB [Suspect]
     Active Substance: LAPATINIB DITOSYLATE
     Dosage: 1250 MG,
     Route: 048
     Dates: start: 20130306
  2. GOSHAJINKIGAN [Concomitant]
     Active Substance: HERBALS
     Indication: PROPHYLAXIS
     Route: 048
     Dates: start: 20120815
  3. TYKERB [Suspect]
     Active Substance: LAPATINIB DITOSYLATE
     Dosage: 1250 MG,
     Route: 048
     Dates: start: 20121031, end: 20130208
  4. LOPEMIN [Concomitant]
     Active Substance: LOPERAMIDE HYDROCHLORIDE
     Indication: PROPHYLAXIS AGAINST DIARRHOEA
     Route: 048
     Dates: start: 20120815, end: 20120905
  5. TYKERB [Suspect]
     Active Substance: LAPATINIB DITOSYLATE
     Indication: INFLAMMATORY CARCINOMA OF THE BREAST
     Dosage: 1250 MG,
     Route: 048
     Dates: start: 20120815, end: 20121011
  6. XELODA [Suspect]
     Active Substance: CAPECITABINE
     Indication: PRODUCT USED FOR UNKNOWN INDICATION
     Dosage: 2400 MG,
     Route: 048
     Dates: start: 20120815, end: 20120925
  7. XELODA [Suspect]
     Active Substance: CAPECITABINE
     Dosage: 3000 MG,
     Route: 048
     Dates: start: 20120926, end: 20121011
  8. LAC-B [Concomitant]
     Active Substance: BIFIDOBACTERIUM SPP.
     Indication: PROPHYLAXIS AGAINST DIARRHOEA
     Route: 048
     Dates: start: 20120815
  9. XELODA [Suspect]
     Active Substance: CAPECITABINE
     Dosage: 2400 MG,
     Route: 048
     Dates: start: 20121031, end: 20130208
  10. XELODA [Suspect]
     Active Substance: CAPECITABINE
     Dosage: 1800 MG,
     Route: 048
     Dates: start: 20130306
  11. HIRUDOID [Concomitant]
     Active Substance: GLYCOSAMINOGLYCANS
     Indication: PROPHYLAXIS
     Route: 050
     Dates: start: 20120815
  12. ALBUMIN TANNATE [Concomitant]
     Active Substance: ALBUMIN BOVINE\TANNIC ACID
     Indication: PROPHYLAXIS AGAINST DIARRHOEA
     Route: 048
     Dates: start: 20121212
  13. ADSORBIN [Concomitant]
     Active Substance: ALUMINUM SILICATE
     Indication: PROPHYLAXIS AGAINST DIARRHOEA
     Route: 048
     Dates: start: 20121212

REACTIONS (7)
  - Heat illness [Unknown]
  - Diarrhoea [Recovered/Resolved]
  - Malaise [Recovered/Resolved]
  - Decreased appetite [Recovered/Resolved]
  - Vomiting [Recovered/Resolved]
  - Diarrhoea [Recovered/Resolved]
  - Pseudomembranous colitis [Unknown]

NARRATIVE: CASE EVENT DATE: 20121012
